FAERS Safety Report 4348716-X (Version None)
Quarter: 2004Q2

REPORT INFORMATION
  Report Type: 
  Country: None (occurrence: None)
  Receive Date: 20040427
  Receipt Date: 20030411
  Transmission Date: 20050107
  Serious: Yes (Hospitalization, Disabling)
  Sender: FDA-Public Use
  Company Number: US-MERCK-0304USA01288

PATIENT
  Age: 53 Year
  Sex: Female
  Weight: 80 kg

DRUGS (11)
  1. ECOTRIN [Concomitant]
     Indication: OSTEOARTHRITIS
     Route: 065
  2. PLAVIX [Concomitant]
     Route: 065
  3. DYAZIDE [Concomitant]
     Indication: HYPERTENSION
     Route: 065
  4. AVAPRO [Concomitant]
     Indication: HYPERTENSION
     Route: 065
  5. ATIVAN [Concomitant]
     Route: 065
  6. MECLIZINE [Concomitant]
     Route: 065
  7. LOPRESSOR [Concomitant]
     Indication: HYPERTENSION
     Route: 065
  8. MIDAZOLAM [Concomitant]
     Route: 065
  9. VIOXX [Suspect]
     Indication: OSTEOARTHRITIS
     Route: 048
     Dates: start: 19991101, end: 20000701
  10. VIOXX [Suspect]
     Route: 048
     Dates: start: 20000701, end: 20010801
  11. MIACALCIN [Concomitant]
     Route: 065

REACTIONS (34)
  - ACCIDENT AT WORK [None]
  - ANGINA PECTORIS [None]
  - AORTIC VALVE INCOMPETENCE [None]
  - BLISTER [None]
  - BLOOD CHOLESTEROL INCREASED [None]
  - BLOOD CREATINE PHOSPHOKINASE INCREASED [None]
  - BLOOD PRESSURE INCREASED [None]
  - BRONCHOSPASM [None]
  - BUNDLE BRANCH BLOCK RIGHT [None]
  - CARDIOMEGALY [None]
  - CELLULITIS [None]
  - CHEST PAIN [None]
  - CORONARY ARTERY DISEASE [None]
  - CORONARY ARTERY OCCLUSION [None]
  - CORONARY ARTERY THROMBOSIS [None]
  - DIZZINESS [None]
  - HEADACHE [None]
  - INJURY [None]
  - LOW DENSITY LIPOPROTEIN INCREASED [None]
  - MALAISE [None]
  - MEDIASTINAL HAEMATOMA [None]
  - MITRAL VALVE INCOMPETENCE [None]
  - MYOCARDIAL ISCHAEMIA [None]
  - NAUSEA [None]
  - OSTEOMYELITIS [None]
  - PLEURAL EFFUSION [None]
  - PNEUMOTHORAX [None]
  - POSTOPERATIVE INFECTION [None]
  - SILENT MYOCARDIAL INFARCTION [None]
  - TRICUSPID VALVE INCOMPETENCE [None]
  - VENTRICULAR DYSFUNCTION [None]
  - VENTRICULAR HYPOKINESIA [None]
  - VENTRICULAR TACHYCARDIA [None]
  - VERTIGO [None]
